FAERS Safety Report 24150602 (Version 1)
Quarter: 2024Q3

REPORT INFORMATION
  Report Type: Spontaneous
  Country: US (occurrence: US)
  Receive Date: 20240730
  Receipt Date: 20240730
  Transmission Date: 20241017
  Serious: No
  Sender: ROCHE
  Company Number: US-ROCHE-10000040529

PATIENT
  Sex: Female

DRUGS (1)
  1. OCREVUS [Suspect]
     Active Substance: OCRELIZUMAB
     Indication: Multiple sclerosis
     Dosage: INFUSE 600MG IN 500ML 0.9% NS INTRAVENOUSLY AT 40ML\HR AND INCREASE BY 40ML/HR EVERY 30 MINUTES (MAX
     Route: 042
     Dates: start: 202207

REACTIONS (2)
  - Drug ineffective [Unknown]
  - No adverse event [Unknown]
